FAERS Safety Report 5179004-X (Version None)
Quarter: 2006Q4

REPORT INFORMATION
  Report Type: 
  Country: None (occurrence: None)
  Receive Date: 20061215
  Receipt Date: 20061215
  Transmission Date: 20070319
  Serious: Yes (Death)
  Sender: FDA-Public Use
  Company Number: None

PATIENT
  Age: 59 Year
  Sex: Female
  Weight: 111 kg

DRUGS (4)
  1. ARIXTRA [Suspect]
     Indication: DEEP VEIN THROMBOSIS
     Dosage: 7.5  MG DAILY PO SQ
     Route: 048
     Dates: start: 20061020, end: 20061030
  2. ARIXTRA [Suspect]
     Indication: HEPARIN-INDUCED THROMBOCYTOPENIA
     Dosage: 7.5  MG DAILY PO SQ
     Route: 048
     Dates: start: 20061020, end: 20061030
  3. WARFARIN SODIUM [Suspect]
     Indication: DEEP VEIN THROMBOSIS
     Dosage: 2 MG PO
     Route: 048
     Dates: start: 20061014, end: 20061030
  4. WARFARIN SODIUM [Suspect]
     Indication: HEPARIN-INDUCED THROMBOCYTOPENIA
     Dosage: 2 MG PO
     Route: 048
     Dates: start: 20061014, end: 20061030

REACTIONS (3)
  - HAEMORRHAGE INTRACRANIAL [None]
  - POST PROCEDURAL COMPLICATION [None]
  - SUBDURAL HAEMATOMA [None]
